FAERS Safety Report 4532950-X (Version None)
Quarter: 2004Q4

REPORT INFORMATION
  Report Type: 
  Country: None (occurrence: None)
  Receive Date: 20041221
  Receipt Date: 20040913
  Transmission Date: 20050328
  Serious: Yes (Other)
  Sender: FDA-Public Use
  Company Number: PHBS2004BR12092

PATIENT
  Age: 46 Year
  Sex: Male
  Weight: 60 kg

DRUGS (9)
  1. MELLARIL [Suspect]
     Indication: MENTAL DISORDER
     Dosage: 500 MG/D
     Route: 048
     Dates: start: 20040101, end: 20040801
  2. CARBOLITIUM [Concomitant]
     Dosage: 300 MG/D
     Route: 048
  3. AKINETON [Concomitant]
     Indication: MENTAL DISORDER
     Dosage: UNK, UNK
     Route: 048
  4. AKINETON [Concomitant]
     Dosage: 2 MG, TID
     Route: 048
  5. CINOTOL [Concomitant]
     Route: 065
  6. HALDOL [Concomitant]
     Dosage: 1 MG/D
     Route: 048
  7. HALDOL [Concomitant]
     Dosage: 2 DF, QHS
     Route: 048
  8. DIAZEPAM [Concomitant]
     Dosage: 10 MG, QHS
     Route: 065
  9. NEURONTIN [Concomitant]
     Dosage: 5 TABLETS/D
     Route: 048

REACTIONS (3)
  - DIZZINESS [None]
  - DRY MOUTH [None]
  - SYNCOPE [None]
